FAERS Safety Report 10434370 (Version 2)
Quarter: 2014Q3

REPORT INFORMATION
  Report Type: Spontaneous
  Country: CH (occurrence: CH)
  Receive Date: 20140905
  Receipt Date: 20140905
  Transmission Date: 20150326
  Serious: Yes (Other)
  Sender: FDA-Public Use
  Company Number: CH-TEVA-405725ISR

PATIENT
  Age: 32 Year
  Sex: Female

DRUGS (3)
  1. DICLOFENAC [Suspect]
     Active Substance: DICLOFENAC
     Dosage: 200 MILLIGRAM DAILY; TAKEN FREQUENTLY DURING FEB-2013 AND MAR-2013
     Dates: start: 201302, end: 201303
  2. OLOZYN MICRO [Suspect]
     Active Substance: ETHINYL ESTRADIOL\LEVONORGESTREL
     Indication: CONTRACEPTION
     Dosage: 1 DOSAGE FORMS DAILY; LEVONORGESTREL 150 ?G/ ETHINYLESTRADIOLE 30 ?G, LONG TERM
     Route: 048
     Dates: start: 2011, end: 20130315
  3. IRFEN [Suspect]
     Active Substance: IBUPROFEN
     Dosage: 1200 MILLIGRAM DAILY;
     Dates: start: 201301, end: 201301

REACTIONS (3)
  - Drug ineffective [Not Recovered/Not Resolved]
  - Abortion induced [Recovered/Resolved]
  - Exposure during pregnancy [Unknown]

NARRATIVE: CASE EVENT DATE: 20140424
